FAERS Safety Report 4701512-3 (Version None)
Quarter: 2005Q2

REPORT INFORMATION
  Report Type: 
  Country: None (occurrence: None)
  Receive Date: 20050628
  Receipt Date: 20050622
  Transmission Date: 20051028
  Serious: Yes (Life-Threatening)
  Sender: FDA-Public Use
  Company Number: US-ROCHE-408485

PATIENT
  Age: 11 Year
  Sex: Male
  Weight: 33.6 kg

DRUGS (1)
  1. DACLIZUMAB [Suspect]
     Route: 065
     Dates: start: 20050618

REACTIONS (2)
  - HAEMODIALYSIS [None]
  - HYPERKALAEMIA [None]
